FAERS Safety Report 19901835 (Version 1)
Quarter: 2021Q3

REPORT INFORMATION
  Report Type: Spontaneous
  Country: CN (occurrence: CN)
  Receive Date: 20210929
  Receipt Date: 20210929
  Transmission Date: 20211014
  Serious: Yes (Hospitalization)
  Sender: FDA-Public Use
  Company Number: CN-BAXTER-2021BAX026935

PATIENT
  Age: 43 Year
  Sex: Female
  Weight: 69 kg

DRUGS (6)
  1. ENDOXAN [Suspect]
     Active Substance: CYCLOPHOSPHAMIDE
     Indication: BREAST CANCER FEMALE
     Dosage: NS 100ML + CYCLOPHOSPHAMIDE FOR INJECTION (ENDOXAN) 0.85G
     Route: 041
     Dates: start: 20201028, end: 20201028
  2. 0.9% SODIUM CHLORIDE INJECTION [Suspect]
     Active Substance: SODIUM CHLORIDE
     Dosage: NS 100ML + EPIRUBICIN HYDROCHLORIDE FOR INJECTION 150MG
     Route: 041
     Dates: start: 20201028, end: 20201028
  3. 0.9% SODIUM CHLORIDE INJECTION [Suspect]
     Active Substance: SODIUM CHLORIDE
     Dosage: NS 250ML + DOCETAXEL INJECTION 130 MG
     Route: 041
     Dates: start: 20201028, end: 20201028
  4. AOMINGRUN [Suspect]
     Active Substance: DOCETAXEL
     Indication: BREAST CANCER FEMALE
     Dosage: NS 250ML + DOCETAXEL INJECTION 130 MG
     Route: 041
     Dates: start: 20201028, end: 20201028
  5. 0.9% SODIUM CHLORIDE INJECTION [Suspect]
     Active Substance: SODIUM CHLORIDE
     Indication: MEDICATION DILUTION
     Dosage: NS 100ML + CYCLOPHOSPHAMIDE FOR INJECTION (ENDOXAN) 0.85G
     Route: 041
     Dates: start: 20201028, end: 20201028
  6. EPIRUBICIN HYDROCHLORIDE. [Suspect]
     Active Substance: EPIRUBICIN HYDROCHLORIDE
     Indication: BREAST CANCER FEMALE
     Dosage: NS 100ML + EPIRUBICIN HYDROCHLORIDE FOR INJECTION 150MG
     Route: 041
     Dates: start: 20201028, end: 20201028

REACTIONS (1)
  - White blood cell count decreased [Recovered/Resolved]

NARRATIVE: CASE EVENT DATE: 20201030
